FAERS Safety Report 6994526-4 (Version None)
Quarter: 2010Q3

REPORT INFORMATION
  Report Type: 
  Country: None (occurrence: None)
  Receive Date: 20100917
  Receipt Date: 20100907
  Transmission Date: 20110219
  Serious: Yes (Other)
  Sender: FDA-Public Use
  Company Number: US-JNJCH-2010020458

PATIENT
  Age: 55 Year
  Sex: Female
  Weight: 90.7 kg

DRUGS (2)
  1. CALADRYL [Suspect]
     Indication: ARTHROPOD BITE
     Dosage: TEXT:DIME SIZED AMOUNT 2 OR 3 TIMES
     Route: 061
     Dates: start: 20100902, end: 20100903
  2. DEXTROSE [Concomitant]
     Indication: DIABETES MELLITUS
     Dosage: TEXT:ONE TABLET
     Route: 048

REACTIONS (3)
  - APPLICATION SITE BURN [None]
  - BLISTER [None]
  - EXPIRED DRUG ADMINISTERED [None]
